FAERS Safety Report 5926811-9 (Version None)
Quarter: 2008Q4

REPORT INFORMATION
  Report Type: 
  Country: None (occurrence: None)
  Receive Date: 20081017
  Receipt Date: 20081006
  Transmission Date: 20090506
  Serious: Yes (Other)
  Sender: FDA-Public Use
  Company Number: 2008US002715

PATIENT
  Age: 52 Year
  Sex: Female

DRUGS (3)
  1. PROGRAF [Suspect]
     Indication: RENAL TRANSPLANT
  2. MYCOPHENOLATE (MYCOPHENOLAT4E MOFETIL) [Suspect]
     Indication: RENAL TRANSPLANT
  3. PREDNISOLONE ACETATE [Suspect]
     Indication: RENAL TRANSPLANT

REACTIONS (9)
  - CHOLANGITIS [None]
  - CHOLESTASIS [None]
  - CHRONIC ALLOGRAFT NEPHROPATHY [None]
  - COMPLICATIONS OF TRANSPLANTED KIDNEY [None]
  - GRAFT DYSFUNCTION [None]
  - HEPATIC CIRRHOSIS [None]
  - HEPATITIS C [None]
  - HEPATITIS CHOLESTATIC [None]
  - RENAL TUBULAR NECROSIS [None]
